FAERS Safety Report 4345049-2 (Version None)
Quarter: 2004Q1

REPORT INFORMATION
  Report Type: 
  Country: None (occurrence: None)
  Receive Date: 20040325
  Receipt Date: 20031219
  Transmission Date: 20041129
  Serious: No
  Sender: FDA-Public Use
  Company Number: USA031153503

PATIENT
  Age: 46 Year
  Sex: Female

DRUGS (3)
  1. FORTEO [Suspect]
     Indication: OSTEOPOROSIS
     Dosage: 20 UG/DAY
     Dates: start: 20030423, end: 20031029
  2. SYNTHROID [Concomitant]
  3. ORAL CONTRACEPTIVE NOS [Concomitant]

REACTIONS (4)
  - ARTHRALGIA [None]
  - NEURALGIA [None]
  - PAIN IN EXTREMITY [None]
  - PARAESTHESIA [None]
